FAERS Safety Report 7868116-5 (Version None)
Quarter: 2011Q4

REPORT INFORMATION
  Report Type: 
  Country: None (occurrence: None)
  Receive Date: 20111028
  Receipt Date: 20111020
  Transmission Date: 20120403
  Serious: Yes (Hospitalization, Other)
  Sender: FDA-Public Use
  Company Number: PHEH2008US07606

PATIENT
  Sex: Female
  Weight: 70.9 kg

DRUGS (42)
  1. VIOXX [Concomitant]
     Dosage: 2 QD
  2. INTERFERON [Concomitant]
     Indication: MULTIPLE MYELOMA
  3. EPOGEN [Concomitant]
  4. BACTRIM [Concomitant]
  5. ASPIRIN [Concomitant]
     Dosage: 81 MG, QD
     Route: 048
  6. SODIUM BICARBONATE [Concomitant]
     Dosage: 650 MG, TID
  7. ZOVIRAX [Concomitant]
     Dosage: 200 MG, Q48H
     Route: 048
  8. NEUPOGEN [Concomitant]
     Dosage: 300 UG, UNK
  9. ASPIRIN [Concomitant]
  10. RENAGEL [Concomitant]
  11. ATIVAN [Concomitant]
     Route: 042
  12. FUROSEMIDE [Concomitant]
  13. ARANESP [Concomitant]
  14. THALIDOMIDE [Concomitant]
  15. PAMELOR [Concomitant]
     Indication: LIMB DISCOMFORT
  16. M.V.I. [Concomitant]
  17. NYSTATIN [Concomitant]
  18. ZOMETA [Suspect]
     Dosage: 4 MG, UNK
  19. VICODIN [Concomitant]
  20. RENA-VITE [Concomitant]
  21. IMODIUM [Concomitant]
     Dosage: 2 MG, Q6H PRN
     Route: 048
  22. CEFEPIME [Concomitant]
     Dosage: 1 G, Q12H
     Route: 042
  23. PROTONIX [Concomitant]
     Dosage: 40 MG, QD
     Route: 048
  24. HYDROCODONE BITARTRATE [Concomitant]
     Indication: PAIN
  25. FLEXERIL [Concomitant]
     Dosage: 5 MG, Q8H PRN
     Route: 048
  26. TYLENOL-500 [Concomitant]
     Dosage: 1 DF, Q6H PRN
     Route: 048
  27. NEPHRO-VITE [Concomitant]
     Indication: RENAL FAILURE
  28. ZEMPLAR [Concomitant]
  29. OXYCONTIN [Concomitant]
     Indication: PAIN
  30. RYTHMOL [Concomitant]
     Dosage: 50 MG, 2QD
  31. NEURONTIN [Concomitant]
  32. HEMODIALYSIS [Concomitant]
     Indication: MULTIPLE MYELOMA
  33. POTASSIUM CHLORIDE [Concomitant]
     Dosage: 10 MEQ, QD
  34. ALBUTEROL [Concomitant]
  35. AREDIA [Suspect]
     Dosage: UNK UKN, QMO
     Route: 042
     Dates: start: 20020101
  36. IRON [Concomitant]
  37. POTASSIUM [Concomitant]
  38. DEXAMETHASONE [Concomitant]
  39. ZOFRAN [Concomitant]
     Dosage: 8 MG, UNK
  40. PYRIDOXINE HCL [Concomitant]
     Dosage: 50 MG, QD
  41. PEPCID [Concomitant]
     Dosage: 20 MG, QD
     Route: 048
  42. LASIX [Concomitant]

REACTIONS (75)
  - PANCYTOPENIA [None]
  - HYPOCALCAEMIA [None]
  - PROTEINURIA [None]
  - INTERSTITIAL LUNG DISEASE [None]
  - LIGAMENT SPRAIN [None]
  - CONTUSION [None]
  - DENTAL FISTULA [None]
  - DEFORMITY [None]
  - HAEMODIALYSIS [None]
  - DERMAL CYST [None]
  - LIVER TRANSPLANT [None]
  - PAIN [None]
  - CELLULITIS [None]
  - ANAEMIA MACROCYTIC [None]
  - PLEURAL EFFUSION [None]
  - INFLUENZA LIKE ILLNESS [None]
  - ABDOMINAL PAIN [None]
  - CHRONIC OBSTRUCTIVE PULMONARY DISEASE [None]
  - INTERVERTEBRAL DISC PROTRUSION [None]
  - FALL [None]
  - OSTEONECROSIS OF JAW [None]
  - HYPOAESTHESIA [None]
  - NEUROPATHY PERIPHERAL [None]
  - THROMBOCYTOPENIA [None]
  - OROPHARYNGEAL PAIN [None]
  - SINUS CONGESTION [None]
  - NEUTROPENIA [None]
  - HYPERPHOSPHATAEMIA [None]
  - JAW FRACTURE [None]
  - RENAL FAILURE ACUTE [None]
  - ORAL CANDIDIASIS [None]
  - CATARACT [None]
  - BACK PAIN [None]
  - MUSCULAR WEAKNESS [None]
  - ANXIETY [None]
  - OSTEOSCLEROSIS [None]
  - TOOTH ABSCESS [None]
  - DISEASE PROGRESSION [None]
  - ESCHERICHIA URINARY TRACT INFECTION [None]
  - PRESBYOPIA [None]
  - OSTEOPOROSIS [None]
  - RENAL FAILURE [None]
  - PERIODONTITIS [None]
  - DIVERTICULUM [None]
  - MULTIPLE MYELOMA [None]
  - PYREXIA [None]
  - PULMONARY OEDEMA [None]
  - ARTERIOVENOUS FISTULA [None]
  - LYMPHADENOPATHY [None]
  - RENAL FAILURE CHRONIC [None]
  - OTITIS MEDIA [None]
  - HYPOGAMMAGLOBULINAEMIA [None]
  - CAROTID ARTERY STENOSIS [None]
  - ADVERSE DRUG REACTION [None]
  - HILAR LYMPHADENOPATHY [None]
  - LUMBAR SPINAL STENOSIS [None]
  - DEHYDRATION [None]
  - OSTEOMYELITIS [None]
  - GLAUCOMA [None]
  - INJURY [None]
  - INFECTION [None]
  - COUGH [None]
  - DENTAL NECROSIS [None]
  - SPINAL OSTEOARTHRITIS [None]
  - RHINITIS ALLERGIC [None]
  - LIMB DISCOMFORT [None]
  - OSTEOPENIA [None]
  - SIALOADENITIS [None]
  - VOMITING [None]
  - NEPHROTIC SYNDROME [None]
  - CEREBROVASCULAR DISORDER [None]
  - HEPATIC STEATOSIS [None]
  - SEPSIS [None]
  - HYPOKALAEMIA [None]
  - VISION BLURRED [None]
